FAERS Safety Report 20097804 (Version 1)
Quarter: 2021Q4

REPORT INFORMATION
  Report Type: Spontaneous
  Country: US (occurrence: US)
  Receive Date: 20211122
  Receipt Date: 20211122
  Transmission Date: 20220303
  Serious: No
  Sender: FDA-Public Use
  Company Number: US-Evolus, Inc.-2021EV000189

PATIENT
  Sex: Female

DRUGS (1)
  1. JEUVEAU [Suspect]
     Active Substance: PRABOTULINUMTOXINA-XVFS
     Indication: Product used for unknown indication
     Dates: start: 20210922

REACTIONS (6)
  - Eyelid oedema [Unknown]
  - Rhinorrhoea [Unknown]
  - Headache [Unknown]
  - Nasopharyngitis [Unknown]
  - Photophobia [Unknown]
  - Off label use [Unknown]

NARRATIVE: CASE EVENT DATE: 20210922
